FAERS Safety Report 8818945 (Version 1)
Quarter: 2012Q4

REPORT INFORMATION
  Report Type: 
  Country: ES (occurrence: ES)
  Receive Date: 20121001
  Receipt Date: 20121001
  Transmission Date: 20130627
  Serious: Yes (Other)
  Sender: FDA-Public Use
  Company Number: ES-SANOFI-AVENTIS-2012SA070989

PATIENT
  Age: 59 Year
  Sex: Female

DRUGS (1)
  1. CHLOROQUINE (SALT NOT SPECIFIED) [Suspect]
     Indication: SYSTEMIC LUPUS ERYTHEMATOSUS
     Dosage: frequency: 6 days a week
     Route: 065

REACTIONS (8)
  - Atrioventricular block complete [Recovered/Resolved]
  - Fatigue [Recovered/Resolved]
  - Electrocardiogram QRS complex prolonged [Recovered/Resolved]
  - Heart rate decreased [Recovered/Resolved]
  - Off label use [Unknown]
  - Retinopathy [Unknown]
  - Colour vision tests abnormal [Unknown]
  - Scotoma [Unknown]
